FAERS Safety Report 9524531 (Version 2)
Quarter: 2013Q4

REPORT INFORMATION
  Report Type: Spontaneous
  Country: US (occurrence: US)
  Receive Date: 20130916
  Receipt Date: 20131023
  Transmission Date: 20140711
  Serious: No
  Sender: FDA-Public Use
  Company Number: US-PFIZER INC-2013264594

PATIENT
  Age: 44 Year
  Sex: Female

DRUGS (5)
  1. LYRICA [Suspect]
     Dosage: 150 MG, 2X/DAY (1 PILL BY MOUTH TWO TIMES A DAY)
     Route: 048
  2. LYRICA [Suspect]
     Dosage: 150 MG, 3X/DAY (1 PILL BY MOUTH 3 TIMES A DAY)
     Route: 048
  3. GABAPENTIN [Suspect]
     Dosage: 600 MG, 5 TIMES/DAY
  4. OXYCODONE/APAP [Suspect]
     Dosage: UNK
  5. TEGRETOL XR [Suspect]
     Dosage: 400 MG, 2X/DAY

REACTIONS (4)
  - Facial pain [Unknown]
  - Trigeminal neuralgia [Unknown]
  - Drug ineffective [Unknown]
  - Malaise [Unknown]
